FAERS Safety Report 5104150-6 (Version None)
Quarter: 2006Q3

REPORT INFORMATION
  Report Type: 
  Country: None (occurrence: None)
  Receive Date: 20060911
  Receipt Date: 20060828
  Transmission Date: 20061208
  Serious: Yes (Life-Threatening, Hospitalization, Disabling)
  Sender: FDA-Public Use
  Company Number: 2006-02204

PATIENT
  Age: 64 Year
  Sex: Female

DRUGS (7)
  1. VELCADE [Suspect]
     Indication: MULTIPLE MYELOMA
     Dosage: 1.32 MG/M2, INTRAVENOUS
     Route: 042
     Dates: start: 20060816, end: 20060816
  2. DEXAMETHASONE TAB [Concomitant]
  3. ACYCLOVIR [Concomitant]
  4. BACTRIM [Concomitant]
  5. OMEPRAZOLE [Concomitant]
  6. EFFEXOR [Concomitant]
  7. LUFTAL                (DIMETICONE) [Concomitant]

REACTIONS (5)
  - ANAEMIA [None]
  - FATIGUE [None]
  - HAEMORRHAGIC STROKE [None]
  - NEUROPATHY [None]
  - PLATELET COUNT DECREASED [None]
